FAERS Safety Report 13913141 (Version 1)
Quarter: 2017Q3

REPORT INFORMATION
  Report Type: Spontaneous
  Country: US (occurrence: US)
  Receive Date: 20170828
  Receipt Date: 20170828
  Transmission Date: 20171127
  Serious: No
  Sender: FDA-Public Use
  Company Number: US-ROCHE-1123958

PATIENT
  Age: 3 Year
  Sex: Male
  Weight: 14.7 kg

DRUGS (4)
  1. BICARBONATE [Concomitant]
     Active Substance: BICARBONATE ION
     Dosage: DOSE INCREASED
     Route: 065
  2. BICARBONATE [Concomitant]
     Active Substance: BICARBONATE ION
     Route: 065
  3. NUTROPIN [Suspect]
     Active Substance: SOMATROPIN
     Indication: CHRONIC KIDNEY DISEASE
     Dosage: 0.11CC DAILY OR 0.26MG/KG/WK
     Route: 058
  4. EPOGEN [Concomitant]
     Active Substance: ERYTHROPOIETIN

REACTIONS (2)
  - Weight decreased [Unknown]
  - Gastroenteritis [Unknown]

NARRATIVE: CASE EVENT DATE: 20011204
